FAERS Safety Report 24781765 (Version 2)
Quarter: 2025Q1

REPORT INFORMATION
  Report Type: Spontaneous
  Country: US (occurrence: US)
  Receive Date: 20241227
  Receipt Date: 20250102
  Transmission Date: 20250409
  Serious: No
  Sender: BRISTOL-MYERS SQUIBB COMPANY
  Company Number: US-BRISTOL-MYERS SQUIBB COMPANY-2024-199639

PATIENT
  Age: 81 Year
  Sex: Male
  Weight: 80.74 kg

DRUGS (1)
  1. REVLIMID [Suspect]
     Active Substance: LENALIDOMIDE
     Indication: Burkitt^s lymphoma
     Route: 048
     Dates: start: 20241201

REACTIONS (3)
  - White blood cell count abnormal [Unknown]
  - Red blood cell count abnormal [Unknown]
  - Off label use [Unknown]
